FAERS Safety Report 8434085-2 (Version None)
Quarter: 2012Q2

REPORT INFORMATION
  Report Type: 
  Country: None (occurrence: None)
  Receive Date: 20120613
  Receipt Date: 20120608
  Transmission Date: 20120825
  Serious: No
  Sender: FDA-Public Use
  Company Number: VE-PFIZER INC-2012132018

PATIENT
  Age: 77 Year
  Sex: Female

DRUGS (3)
  1. LIPITOR [Concomitant]
     Indication: HYPERCHOLESTEROLAEMIA
     Dosage: UNK MG, 1X/DAY
     Route: 048
  2. LYRICA [Suspect]
     Indication: CEREBROVASCULAR ACCIDENT
     Dosage: 75 MG, 1X/DAY
     Route: 048
     Dates: end: 20120401
  3. PLAVIX [Concomitant]
     Dosage: UNK
     Dates: start: 20090101

REACTIONS (2)
  - DRY MOUTH [None]
  - CONSTIPATION [None]
